FAERS Safety Report 7685790-7 (Version None)
Quarter: 2011Q3

REPORT INFORMATION
  Report Type: 
  Country: None (occurrence: None)
  Receive Date: 20110815
  Receipt Date: 20110815
  Transmission Date: 20111222
  Serious: Yes (Other)
  Sender: FDA-Public Use
  Company Number: None

PATIENT
  Age: 82 Year
  Sex: Male

DRUGS (1)
  1. OXYBUTYNIN [Suspect]
     Indication: POLLAKIURIA
     Dosage: 1 TABLET
     Route: 048
     Dates: start: 20110804, end: 20110813

REACTIONS (3)
  - PRODUCT QUALITY ISSUE [None]
  - DERMATITIS ALLERGIC [None]
  - DRUG HYPERSENSITIVITY [None]
